FAERS Safety Report 14856708 (Version 1)
Quarter: 2018Q2

REPORT INFORMATION
  Report Type: Spontaneous
  Country: US (occurrence: US)
  Receive Date: 20180507
  Receipt Date: 20180507
  Transmission Date: 20180711
  Serious: No
  Sender: FDA-Public Use
  Company Number: US-ROCHE-2067835

PATIENT
  Sex: Male

DRUGS (9)
  1. METOLAZONE. [Concomitant]
     Active Substance: METOLAZONE
  2. LASIX [Concomitant]
     Active Substance: FUROSEMIDE
  3. BETAPACE [Concomitant]
     Active Substance: SOTALOL HYDROCHLORIDE
  4. TOUJEO [Concomitant]
     Active Substance: INSULIN GLARGINE
  5. HUMALOG [Concomitant]
     Active Substance: INSULIN LISPRO
  6. TOPROL XL [Concomitant]
     Active Substance: METOPROLOL SUCCINATE
  7. ESBRIET [Suspect]
     Active Substance: PIRFENIDONE
     Indication: IDIOPATHIC PULMONARY FIBROSIS
     Dosage: NEVER FILLED
     Route: 065
  8. GLIMEPIRIDE. [Concomitant]
     Active Substance: GLIMEPIRIDE
  9. FERROUS SULFATE. [Concomitant]
     Active Substance: FERROUS SULFATE

REACTIONS (2)
  - Restlessness [Unknown]
  - Insomnia [Unknown]
